FAERS Safety Report 6328123-0 (Version None)
Quarter: 2009Q3

REPORT INFORMATION
  Report Type: 
  Country: None (occurrence: None)
  Receive Date: 20090825
  Receipt Date: 20090126
  Transmission Date: 20100115
  Serious: No
  Sender: FDA-Public Use
  Company Number: US-ABBOTT-09P-163-0500112-00

PATIENT
  Sex: Female
  Weight: 61.29 kg

DRUGS (2)
  1. SYNTHROID [Suspect]
     Indication: HYPOTHYROIDISM
     Dates: start: 20080607, end: 20081103
  2. NAPROSYN [Concomitant]
     Indication: DYSMENORRHOEA
     Dosage: PRN

REACTIONS (7)
  - AGGRESSION [None]
  - ANXIETY [None]
  - CONTUSION [None]
  - FATIGUE [None]
  - IRRITABILITY [None]
  - MOOD ALTERED [None]
  - NERVOUSNESS [None]
